FAERS Safety Report 4404261-4 (Version None)
Quarter: 2004Q3

REPORT INFORMATION
  Report Type: 
  Country: None (occurrence: None)
  Receive Date: 20040720
  Receipt Date: 20040708
  Transmission Date: 20050211
  Serious: Yes (Death, Hospitalization, Other)
  Sender: FDA-Public Use
  Company Number: JP-JNJFOC-20040505680

PATIENT
  Age: 64 Year
  Sex: Male

DRUGS (12)
  1. LEUSTATIN [Suspect]
     Indication: LYMPHOMA
     Dosage: 5.5 MG, 1 IN 1 DAY, INTRAVENOUS DRIP
     Route: 041
     Dates: start: 20040114, end: 20040116
  2. LEUSTATIN [Suspect]
     Indication: LYMPHOMA
     Dosage: 5.5 MG, 1 IN 1 DAY, INTRAVENOUS DRIP
     Route: 041
     Dates: start: 20040210, end: 20040212
  3. LEUSTATIN [Suspect]
     Indication: LYMPHOMA
     Dosage: 5.5 MG, 1 IN 1 DAY, INTRAVENOUS DRIP
     Route: 041
     Dates: start: 20040309, end: 20040311
  4. LEUSTATIN [Suspect]
     Indication: LYMPHOMA
     Dosage: 5.5 MG, 1 IN 1 DAY, INTRAVENOUS DRIP
     Route: 041
     Dates: start: 20040406, end: 20040408
  5. RITUXIMAB (RITUXIMAB) [Suspect]
     Indication: LYMPHOMA
     Dosage: 580 MG, 1 IN 1 DAY
     Dates: start: 20040113, end: 20040113
  6. RITUXIMAB (RITUXIMAB) [Suspect]
     Indication: LYMPHOMA
     Dosage: 580 MG, 1 IN 1 DAY
     Dates: start: 20040209, end: 20040209
  7. RITUXIMAB (RITUXIMAB) [Suspect]
     Indication: LYMPHOMA
     Dosage: 580 MG, 1 IN 1 DAY
     Dates: start: 20040308, end: 20040308
  8. RITUXIMAB (RITUXIMAB) [Suspect]
     Indication: LYMPHOMA
     Dosage: 580 MG, 1 IN 1 DAY
     Dates: start: 20040405, end: 20040405
  9. MITOXANTRONE [Suspect]
     Dosage: 10 MG, 1 IN 1 DAY
     Dates: start: 20040114, end: 20040114
  10. MITOXANTRONE [Suspect]
     Dosage: 10 MG, 1 IN 1 DAY
     Dates: start: 20040210, end: 20040210
  11. MITOXANTRONE [Suspect]
     Dosage: 10 MG, 1 IN 1 DAY
     Dates: start: 20040309, end: 20040309
  12. MITOXANTRONE [Suspect]
     Dosage: 10 MG, 1 IN 1 DAY
     Dates: start: 20040406, end: 20040406

REACTIONS (4)
  - BACTERIAL INFECTION [None]
  - INTERSTITIAL LUNG DISEASE [None]
  - PNEUMOCYSTIS CARINII PNEUMONIA [None]
  - PNEUMONIA CYTOMEGALOVIRAL [None]
